FAERS Safety Report 8383875-3 (Version None)
Quarter: 2012Q2

REPORT INFORMATION
  Report Type: 
  Country: None (occurrence: None)
  Receive Date: 20120524
  Receipt Date: 20120514
  Transmission Date: 20120825
  Serious: Yes (Death)
  Sender: FDA-Public Use
  Company Number: US-ACTELION-A-US2012-61351

PATIENT

DRUGS (2)
  1. COUMADIN [Concomitant]
  2. EPOPROSTENOL SODIUM [Suspect]
     Indication: PULMONARY ARTERIAL HYPERTENSION
     Dosage: 15 NG/KG, PER MIN
     Route: 042
     Dates: start: 20101220, end: 20120215

REACTIONS (3)
  - PULMONARY HYPERTENSION [None]
  - DISEASE PROGRESSION [None]
  - RIGHT VENTRICULAR FAILURE [None]
